FAERS Safety Report 11419579 (Version 1)
Quarter: 2015Q3

REPORT INFORMATION
  Report Type: Spontaneous
  Country: US (occurrence: None)
  Receive Date: 20150825
  Receipt Date: 20150825
  Transmission Date: 20151125
  Serious: Yes (Other)
  Sender: FDA-Public Use
  Company Number: None

PATIENT
  Sex: Male
  Weight: 102.06 kg

DRUGS (11)
  1. MULTI VIT. [Concomitant]
  2. LIDODERM PATHES [Concomitant]
  3. SPINAL CORD STIMULATOR [Concomitant]
  4. HYDROMORPHONE [Concomitant]
     Active Substance: HYDROMORPHONE
  5. DURAGESIC [Concomitant]
     Active Substance: FENTANYL
  6. DURAGESIC [Concomitant]
     Active Substance: FENTANYL
  7. ZOLPIDEM [Suspect]
     Active Substance: ZOLPIDEM\ZOLPIDEM TARTRATE
     Indication: INSOMNIA
     Route: 048
  8. CYMBALTA [Concomitant]
     Active Substance: DULOXETINE HYDROCHLORIDE
  9. GABAPENTIN. [Concomitant]
     Active Substance: GABAPENTIN
  10. AMBIEN [Concomitant]
     Active Substance: ZOLPIDEM TARTRATE
  11. LOVAZA [Concomitant]
     Active Substance: OMEGA-3-ACID ETHYL ESTERS

REACTIONS (2)
  - Somnolence [None]
  - Feeling abnormal [None]

NARRATIVE: CASE EVENT DATE: 2010
